FAERS Safety Report 9111539 (Version 1)
Quarter: 2013Q1

REPORT INFORMATION
  Report Type: Spontaneous
  Country: US (occurrence: US)
  Receive Date: 20130219
  Receipt Date: 20130219
  Transmission Date: 20140127
  Serious: No
  Sender: FDA-Public Use
  Company Number: US-BRISTOL-MYERS SQUIBB COMPANY-17104258

PATIENT
  Age: 63 Year
  Sex: Female
  Weight: 73.47 kg

DRUGS (1)
  1. ORENCIA FOR INJ 250 MG/VIAL [Suspect]
     Indication: RHEUMATOID ARTHRITIS
     Dosage: NO OF INF:4?INJ,POWDER,LYOPHILIZED, FOR SOLN
     Route: 042
     Dates: start: 201208

REACTIONS (3)
  - Hypoaesthesia [Not Recovered/Not Resolved]
  - Musculoskeletal pain [Not Recovered/Not Resolved]
  - Drug ineffective [Unknown]
